FAERS Safety Report 7131481-0 (Version None)
Quarter: 2010Q4

REPORT INFORMATION
  Report Type: 
  Country: None (occurrence: None)
  Receive Date: 20101201
  Receipt Date: 20101122
  Transmission Date: 20110411
  Serious: Yes (Other)
  Sender: FDA-Public Use
  Company Number: US-CELGENEUS-163-21880-10072538

PATIENT
  Sex: Female
  Weight: 88.9 kg

DRUGS (19)
  1. REVLIMID [Suspect]
     Route: 048
     Dates: start: 20100601, end: 20101027
  2. COUMADIN [Concomitant]
     Route: 065
     Dates: start: 20090313
  3. HYDROCHLOROTHIAZIDE [Concomitant]
     Route: 065
     Dates: start: 20090120
  4. HYDROCORTISONE [Concomitant]
     Route: 061
  5. LIPITOR [Concomitant]
     Route: 048
  6. SLOW FE [Concomitant]
     Route: 048
     Dates: start: 20060925
  7. SYNTHROID [Concomitant]
     Route: 065
     Dates: start: 20060825
  8. ZESTRIL [Concomitant]
     Route: 048
  9. NUTRITIONAL SUPPLEMENTS [Concomitant]
     Route: 065
  10. RYTHMOL [Concomitant]
     Indication: ATRIAL FIBRILLATION
     Route: 048
  11. ALEVE (CAPLET) [Concomitant]
     Indication: ATRIAL FIBRILLATION
     Route: 048
     Dates: start: 20061018
  12. CALCIUM 600 + D [Concomitant]
     Route: 048
     Dates: start: 20060825
  13. CARDIZEM [Concomitant]
     Route: 048
  14. GLUCOSAMINE CHONDROITIN [Concomitant]
     Dosage: 500-400
     Route: 048
     Dates: start: 20060625
  15. MULTI-VITAMINS [Concomitant]
     Route: 065
  16. ASCORBIC ACID [Concomitant]
     Route: 048
  17. VITAMIN D [Concomitant]
     Dosage: 1000 UNIT
     Route: 048
  18. AMIODARONE HCL [Concomitant]
     Route: 065
     Dates: start: 20101027
  19. SIMVASTATIN [Concomitant]
     Route: 048
     Dates: start: 20100803

REACTIONS (5)
  - ANAEMIA [None]
  - CARDIAC DISORDER [None]
  - NEUTROPENIA [None]
  - THROMBOCYTOPENIA [None]
  - WHITE BLOOD CELL COUNT DECREASED [None]
